FAERS Safety Report 16578288 (Version 1)
Quarter: 2019Q3

REPORT INFORMATION
  Report Type: Spontaneous
  Country: US (occurrence: US)
  Receive Date: 20190716
  Receipt Date: 20190716
  Transmission Date: 20191004
  Serious: Yes (Other)
  Sender: FDA-Public Use
  Company Number: US-MYLANLABS-2019M1065820

PATIENT
  Age: 52 Year
  Sex: Male

DRUGS (3)
  1. ACICLOVIR [Suspect]
     Active Substance: ACYCLOVIR
     Indication: HERPES SIMPLEX
     Dosage: ADMINISTERED 3 TIMES A DAY
     Route: 048
  2. ACICLOVIR [Suspect]
     Active Substance: ACYCLOVIR
     Dosage: ADMINISTERED 5 TIMES A DAY
     Route: 048
  3. ACITRETIN. [Concomitant]
     Active Substance: ACITRETIN
     Indication: KERATOSIS FOLLICULAR
     Dosage: INTERMITTENT ADMINISTRATION
     Route: 065

REACTIONS (1)
  - Drug ineffective [Unknown]
